FAERS Safety Report 26061533 (Version 1)
Quarter: 2025Q4

REPORT INFORMATION
  Report Type: Spontaneous
  Country: US (occurrence: US)
  Receive Date: 20251118
  Receipt Date: 20251118
  Transmission Date: 20260117
  Serious: No
  Sender: TIANJIN TIANYAO PHARMACEUTICALS CO.,LTD.
  Company Number: US-tianyaoyaoye-2025-tjpc-000006

PATIENT
  Age: 66 Year
  Sex: Female

DRUGS (4)
  1. METHYLPREDNISOLONE [Suspect]
     Active Substance: METHYLPREDNISOLONE
     Indication: Pain in extremity
     Dosage: 6 TABLETS, ONE DAY
     Route: 048
     Dates: start: 20250809, end: 20250809
  2. METHYLPREDNISOLONE [Suspect]
     Active Substance: METHYLPREDNISOLONE
     Indication: Pain in extremity
     Dosage: 5 TABLETS, ONE DAY
     Route: 048
     Dates: start: 20250810, end: 20250810
  3. METHYLPREDNISOLONE [Suspect]
     Active Substance: METHYLPREDNISOLONE
     Indication: Pain in extremity
     Dosage: 4 TABLETS, ONE DAY
     Route: 048
     Dates: start: 20250811, end: 20250811
  4. METHYLPREDNISOLONE [Suspect]
     Active Substance: METHYLPREDNISOLONE
     Indication: Pain in extremity
     Dosage: 3 TABLETS, ONE DAY
     Route: 048
     Dates: start: 20250812, end: 20250812

REACTIONS (3)
  - Drug ineffective [Unknown]
  - Medication error [Unknown]
  - Product information content complaint [Unknown]

NARRATIVE: CASE EVENT DATE: 20250801
